FAERS Safety Report 7327725-2 (Version None)
Quarter: 2011Q1

REPORT INFORMATION
  Report Type: 
  Country: None (occurrence: None)
  Receive Date: 20110303
  Receipt Date: 20110221
  Transmission Date: 20110831
  Serious: Yes (Death)
  Sender: FDA-Public Use
  Company Number: IT-CELGENEUS-083-50794-11020956

PATIENT
  Sex: Female

DRUGS (15)
  1. VIDAZA [Suspect]
     Dosage: 100 MILLIGRAM
     Route: 058
     Dates: start: 20110128, end: 20110202
  2. LEVOPRAID [Concomitant]
     Dosage: 45 DROPS
     Route: 048
  3. ANTRA [Concomitant]
     Dosage: 200 MILLIGRAM
     Route: 051
     Dates: start: 20110201
  4. GABAPENTIN [Concomitant]
     Dosage: 600 MILLIGRAM
     Route: 048
  5. PREFOLIC [Concomitant]
     Dosage: 15 MILLIGRAM
     Route: 048
     Dates: start: 20110111
  6. IG VENA [Concomitant]
     Dosage: 25 GRAM
     Route: 051
     Dates: start: 20110128, end: 20110202
  7. TAREG [Concomitant]
     Dosage: 160 MILLIGRAM
     Route: 048
  8. HUMALOG [Concomitant]
     Route: 058
  9. PANTOPRAZOLE [Concomitant]
     Dosage: 40 MILLIGRAM
     Route: 048
  10. ROCEPHIN [Concomitant]
     Dosage: 2000 MILLIGRAM
     Route: 051
  11. DOBETIN [Concomitant]
     Route: 030
     Dates: start: 20110111
  12. KLACID [Concomitant]
     Dosage: 2 TABLET
     Route: 048
     Dates: start: 20110114
  13. URBASON [Concomitant]
     Route: 051
  14. LANTUS [Concomitant]
     Route: 058
  15. BINOCRIPT [Concomitant]
     Route: 065
     Dates: start: 20101201

REACTIONS (2)
  - THROMBOCYTOPENIA [None]
  - GASTROINTESTINAL HAEMORRHAGE [None]
